FAERS Safety Report 21096413 (Version 2)
Quarter: 2022Q3

REPORT INFORMATION
  Report Type: Spontaneous
  Country: US (occurrence: US)
  Receive Date: 20220718
  Receipt Date: 20220801
  Transmission Date: 20221027
  Serious: No
  Sender: FDA-Public Use
  Company Number: US-AMGEN-USASP2022119443

PATIENT
  Age: 60 Year
  Sex: Male

DRUGS (3)
  1. OTEZLA [Suspect]
     Active Substance: APREMILAST
     Indication: Product used for unknown indication
     Dosage: UNK
     Route: 065
  2. ACCUTANE [Concomitant]
     Active Substance: ISOTRETINOIN
     Dosage: UNK
  3. CIBINQO [Concomitant]
     Active Substance: ABROCITINIB

REACTIONS (3)
  - Headache [Recovered/Resolved]
  - Illness [Recovered/Resolved]
  - Nausea [Recovered/Resolved]
